FAERS Safety Report 22599594 (Version 1)
Quarter: 2023Q2

REPORT INFORMATION
  Report Type: Spontaneous
  Country: US (occurrence: None)
  Receive Date: 20230613
  Receipt Date: 20230613
  Transmission Date: 20230721
  Serious: Yes (Life-Threatening)
  Sender: FDA-Public Use
  Company Number: None

PATIENT
  Age: 76 Year
  Sex: Male
  Weight: 83 kg

DRUGS (1)
  1. ALBUMIN HUMAN [Suspect]
     Active Substance: ALBUMIN HUMAN
     Indication: Intraoperative care
     Dosage: OTHER FREQUENCY : INTRAOPERATIVE USE;?
     Route: 042
     Dates: start: 20230612, end: 20230612

REACTIONS (2)
  - Hypotension [None]
  - Drug rechallenge positive [None]

NARRATIVE: CASE EVENT DATE: 20230612
